FAERS Safety Report 6371373-8 (Version None)
Quarter: 2009Q3

REPORT INFORMATION
  Report Type: 
  Country: None (occurrence: None)
  Receive Date: 20090923
  Receipt Date: 20090909
  Transmission Date: 20100115
  Serious: Yes (Hospitalization, Other)
  Sender: FDA-Public Use
  Company Number: GB-BAUSCH-2009BL004605

PATIENT
  Age: 52 Year
  Sex: Male

DRUGS (3)
  1. PREDNISOLONE [Suspect]
     Indication: STEM CELL TRANSPLANT
     Dates: start: 20030501, end: 20061101
  2. CYCLOSPORINE [Suspect]
     Indication: STEM CELL TRANSPLANT
     Dates: start: 20030501, end: 20061101
  3. MYCOPHENOLATE MOFETIL [Suspect]
     Indication: STEM CELL TRANSPLANT
     Dates: start: 20030501, end: 20061101

REACTIONS (2)
  - GASTROENTERITIS NOROVIRUS [None]
  - GRAFT VERSUS HOST DISEASE [None]
